FAERS Safety Report 21599118 (Version 2)
Quarter: 2023Q1

REPORT INFORMATION
  Report Type: Report from Study
  Country: US (occurrence: US)
  Receive Date: 20221115
  Receipt Date: 20230216
  Transmission Date: 20230418
  Serious: No
  Sender: FDA-Public Use
  Company Number: US-ABBVIE-22K-163-4440058-00

PATIENT
  Sex: Female

DRUGS (17)
  1. HUMIRA [Suspect]
     Active Substance: ADALIMUMAB
     Indication: Rheumatoid arthritis
     Dosage: FORM STRENGTH 40 MILLIGRAM, CITRATE FREE
     Route: 058
     Dates: start: 20200808, end: 2021
  2. HUMIRA [Suspect]
     Active Substance: ADALIMUMAB
     Dosage: CITRATE FREE, FORM STRENGTH 40 MILLIGRAM
     Route: 058
     Dates: start: 2021
  3. DULOXETINE [Concomitant]
     Active Substance: DULOXETINE
     Indication: Product used for unknown indication
     Route: 048
  4. CALCIUM [Concomitant]
     Active Substance: CALCIUM
     Indication: Product used for unknown indication
     Route: 065
  5. AZATHIOPRINE [Concomitant]
     Active Substance: AZATHIOPRINE
     Indication: Rheumatoid arthritis
     Route: 065
  6. LOSARTAN [Concomitant]
     Active Substance: LOSARTAN
     Indication: Hypertension
     Route: 065
  7. AMOXICILLIN [Concomitant]
     Active Substance: AMOXICILLIN
     Indication: Sinusitis
     Route: 065
  8. ASPIRIN [Concomitant]
     Active Substance: ASPIRIN
     Indication: Product used for unknown indication
     Route: 065
  9. RISEDRONATE SODIUM [Concomitant]
     Active Substance: RISEDRONATE SODIUM
     Indication: Product used for unknown indication
     Route: 065
  10. CLOPIDOGREL [Concomitant]
     Active Substance: CLOPIDOGREL BISULFATE
     Indication: Anticoagulant therapy
     Route: 065
  11. PANTOPRAZOLE [Concomitant]
     Active Substance: PANTOPRAZOLE
     Indication: Dyspepsia
     Route: 065
  12. METOPROLOL [Concomitant]
     Active Substance: METOPROLOL
     Indication: Product used for unknown indication
     Route: 065
  13. ESCITALOPRAM [Concomitant]
     Active Substance: ESCITALOPRAM OXALATE
     Indication: Anxiety
     Route: 065
  14. METOPROLOL [Concomitant]
     Active Substance: METOPROLOL
     Indication: Product used for unknown indication
  15. Pfizer/BioNtech [Concomitant]
     Indication: COVID-19 immunisation
     Dosage: BOOSTER DOSE, ONE DOSE ONCE
     Route: 030
  16. JANSSEN COVID-19 VACCINE [Concomitant]
     Active Substance: AD26.COV2.S
     Indication: COVID-19 immunisation
     Dosage: 2ND DOSE, ONE DOSE ONCE
     Route: 030
     Dates: start: 20211221, end: 20211221
  17. JANSSEN COVID-19 VACCINE [Concomitant]
     Active Substance: AD26.COV2.S
     Indication: COVID-19 immunisation
     Dosage: 1ST DOSE, ONE DOSE ONCE
     Route: 030
     Dates: start: 20210421, end: 20210421

REACTIONS (5)
  - Sinusitis [Not Recovered/Not Resolved]
  - Nasopharyngitis [Recovering/Resolving]
  - Fibromyalgia [Not Recovered/Not Resolved]
  - Therapeutic product effect incomplete [Unknown]
  - Pneumocystis jirovecii pneumonia [Recovering/Resolving]

NARRATIVE: CASE EVENT DATE: 20210101
